FAERS Safety Report 8230108-4 (Version None)
Quarter: 2012Q1

REPORT INFORMATION
  Report Type: 
  Country: None (occurrence: None)
  Receive Date: 20120323
  Receipt Date: 20120319
  Transmission Date: 20120608
  Serious: No
  Sender: FDA-Public Use
  Company Number: US-PFIZER INC-2012035797

PATIENT
  Sex: Female
  Weight: 58.503 kg

DRUGS (16)
  1. AMLODIPINE [Suspect]
     Dosage: 2.5 MG, 1X/DAY
     Dates: start: 20120101, end: 20120101
  2. PROCARDIA XL [Concomitant]
     Indication: ANGINA PECTORIS
     Dosage: UNK
     Dates: start: 20120105, end: 20120207
  3. PROCARDIA XL [Concomitant]
     Indication: HYPERTENSION
     Dosage: 30 MG, 1X/DAY
     Dates: start: 19900101, end: 20111111
  4. SYNTHROID [Concomitant]
     Indication: HYPOTHYROIDISM
     Dosage: 100 UG, 1X/DAY
  5. NIFEDIPINE [Concomitant]
     Indication: HYPERTENSION
  6. DIOVAN HCT [Concomitant]
     Indication: HYPERTENSION
     Dosage: UNK, 2X/DAY
  7. AMLODIPINE [Suspect]
     Indication: HYPERTENSION
     Dosage: 2.5 MG, DAILY
     Route: 048
     Dates: start: 20120207, end: 20120208
  8. NORVASC [Suspect]
     Indication: HYPERTENSION
     Dosage: 5 MG, DAILY
     Route: 048
     Dates: start: 20111114, end: 20111114
  9. SYNTHROID [Concomitant]
     Indication: HYPERTHYROIDISM
  10. DIOVAN [Concomitant]
     Dosage: 160 MG, 1X/DAY
  11. PREMARIN [Concomitant]
     Dosage: 0.3 MG, DAILY
  12. XANAX [Concomitant]
     Dosage: UNK
  13. PROCARDIA XL [Concomitant]
     Dosage: UNK
     Dates: start: 20120208
  14. PROPRANOLOL [Concomitant]
     Dosage: UNK
  15. NORVASC [Suspect]
     Dosage: 5 MG, DAILY
     Route: 048
     Dates: start: 20111115, end: 20111119
  16. NEXIUM [Concomitant]
     Dosage: 40 MG, 1X/DAY

REACTIONS (7)
  - HYPOAESTHESIA [None]
  - CHEST PAIN [None]
  - FEELING ABNORMAL [None]
  - CHEST DISCOMFORT [None]
  - PALPITATIONS [None]
  - DRUG INEFFECTIVE [None]
  - NERVOUSNESS [None]
